FAERS Safety Report 6336943-1 (Version None)
Quarter: 2009Q3

REPORT INFORMATION
  Report Type: 
  Country: None (occurrence: None)
  Receive Date: 20090901
  Receipt Date: 20090824
  Transmission Date: 20100115
  Serious: No
  Sender: FDA-Public Use
  Company Number: US-B.I. PHARMACEUTICALS,INC./RIDGEFIELD-2009-BP-10052BP

PATIENT
  Sex: Female

DRUGS (17)
  1. SPIRIVA [Suspect]
     Indication: CHRONIC OBSTRUCTIVE PULMONARY DISEASE
     Dosage: 18 MCG
     Route: 055
     Dates: start: 20080801
  2. SPIRIVA [Suspect]
     Indication: EMPHYSEMA
  3. PREMARIN [Concomitant]
     Indication: HORMONE REPLACEMENT THERAPY
  4. ASPIRIN [Concomitant]
     Dosage: 81 MG
  5. PREDNISONE [Concomitant]
  6. LISINOPRIL [Concomitant]
     Indication: HYPERTENSION
     Dosage: 40 MG
  7. ATENOLOL [Concomitant]
     Indication: HYPERTENSION
  8. BUMEX [Concomitant]
     Indication: FLUID RETENTION
     Dosage: 1 MG
  9. NEXIUM [Concomitant]
     Indication: GASTROOESOPHAGEAL REFLUX DISEASE
     Dosage: 40 MG
  10. DITROPAN XL [Concomitant]
     Indication: HYPERTONIC BLADDER
  11. TRICOR [Concomitant]
     Indication: BLOOD TRIGLYCERIDES INCREASED
  12. CITRUCEL [Concomitant]
     Indication: PROPHYLAXIS
  13. PROAIR HFA [Concomitant]
  14. ZYRTEC [Concomitant]
     Indication: MULTIPLE ALLERGIES
  15. MULTI-VITAMIN [Concomitant]
     Indication: SUPPLEMENTATION THERAPY
  16. METFORMIN HCL [Concomitant]
     Indication: DIABETES MELLITUS
  17. HYDRALAZINE HCL [Concomitant]
     Indication: HYPERTENSION
     Dosage: 100 MG

REACTIONS (4)
  - ERYTHEMA [None]
  - LYMPHADENOPATHY [None]
  - SWOLLEN TONGUE [None]
  - TONGUE DISCOLOURATION [None]
